FAERS Safety Report 18658279 (Version 5)
Quarter: 2021Q3

REPORT INFORMATION
  Report Type: Spontaneous
  Country: IT (occurrence: IT)
  Receive Date: 20201223
  Receipt Date: 20210727
  Transmission Date: 20211014
  Serious: Yes (Death, Hospitalization, Other)
  Sender: FDA-Public Use
  Company Number: IT-MYLANLABS-2020M1104333

PATIENT
  Age: 61 Year
  Sex: Female

DRUGS (15)
  1. CASPOFUNGIN [Suspect]
     Active Substance: CASPOFUNGIN
     Indication: PYREXIA
     Dosage: UNK
     Dates: start: 200308
  2. GANCICLOVIR. [Concomitant]
     Active Substance: GANCICLOVIR
     Dosage: UNK
     Dates: start: 2003
  3. AMPHOTERICIN B CHOLESTERYL SULFATE COMPLEX [Concomitant]
     Active Substance: AMPHOTERICIN B CHOLESTERYL SULFATE
     Dosage: 3 MG/KG, QD
     Dates: start: 200309
  4. CASPOFUNGIN [Suspect]
     Active Substance: CASPOFUNGIN
     Indication: ENTEROCOCCAL INFECTION
     Dosage: UNK
  5. MYCOPHENOLATE MOFETIL. [Suspect]
     Active Substance: MYCOPHENOLATE MOFETIL
     Dosage: UNK
     Dates: start: 2003, end: 2003
  6. PREDNISONE. [Suspect]
     Active Substance: PREDNISONE
     Indication: IMMUNOSUPPRESSION
     Dosage: UNK
     Route: 065
  7. PREDNISONE. [Suspect]
     Active Substance: PREDNISONE
     Dosage: UNK
     Route: 065
     Dates: start: 2003, end: 2003
  8. CICLOSPORIN [Suspect]
     Active Substance: CYCLOSPORINE
     Indication: IMMUNOSUPPRESSION
     Dosage: UNK
  9. GANCICLOVIR. [Concomitant]
     Active Substance: GANCICLOVIR
     Indication: CYTOMEGALOVIRUS INFECTION
     Dosage: UNK
  10. MYCOPHENOLATE MOFETIL. [Suspect]
     Active Substance: MYCOPHENOLATE MOFETIL
     Indication: IMMUNOSUPPRESSION
     Dosage: UNK
  11. TEICOPLANIN [Concomitant]
     Active Substance: TEICOPLANIN
     Indication: PYREXIA
     Dosage: UNK
     Dates: start: 2003
  12. MEROPENEM. [Concomitant]
     Active Substance: MEROPENEM
     Indication: PYREXIA
     Dosage: UNK
     Dates: start: 2003
  13. CASPOFUNGIN [Suspect]
     Active Substance: CASPOFUNGIN
     Indication: INFECTION
     Dosage: UNK
  14. CICLOSPORIN [Suspect]
     Active Substance: CYCLOSPORINE
     Dosage: UNK
     Dates: start: 2003, end: 2003
  15. GRANULOCYTE COLONY STIMULATING FACTOR [Concomitant]
     Active Substance: GRANULOCYTE COLONY-STIMULATING FACTOR NOS
     Dosage: UNK

REACTIONS (11)
  - Hypogammaglobulinaemia [Unknown]
  - Hepatic function abnormal [Fatal]
  - Neutropenia [Unknown]
  - Cytomegalovirus infection [Recovered/Resolved]
  - Pyrexia [Fatal]
  - Fusarium infection [Fatal]
  - B-cell lymphoma [Fatal]
  - Pleural effusion [Fatal]
  - Enterococcal infection [Unknown]
  - Pulmonary mass [Recovered/Resolved]
  - Cachexia [Fatal]

NARRATIVE: CASE EVENT DATE: 2003
